FAERS Safety Report 20379660 (Version 1)
Quarter: 2022Q1

REPORT INFORMATION
  Report Type: Report from Study
  Country: US (occurrence: US)
  Receive Date: 20220126
  Receipt Date: 20220126
  Transmission Date: 20220423
  Serious: Yes (Death, Other)
  Sender: FDA-Public Use
  Company Number: US-GILEAD-2022-0566949

PATIENT
  Age: 78 Year
  Sex: Female

DRUGS (11)
  1. IDELALISIB [Suspect]
     Active Substance: IDELALISIB
     Indication: Follicle centre lymphoma diffuse small cell lymphoma
     Dosage: 150 MG, BID
     Route: 048
     Dates: start: 20211231, end: 20220121
  2. CYMBALTA [Concomitant]
     Active Substance: DULOXETINE HYDROCHLORIDE
     Dosage: 30MG
  3. ELIQUIS [Concomitant]
     Active Substance: APIXABAN
     Dosage: 5MG BID
  4. OMEPRAZOLE [Concomitant]
     Active Substance: OMEPRAZOLE
     Dosage: 20MG BID
  5. ACYCLOVIR [Concomitant]
     Active Substance: ACYCLOVIR
     Dosage: 400MG
  6. RITUXAN [Concomitant]
     Active Substance: RITUXIMAB
  7. PROCHLORPERAZINE [Concomitant]
     Active Substance: PROCHLORPERAZINE
     Dosage: 10MG
  8. REVLIMID [Concomitant]
     Active Substance: LENALIDOMIDE
     Dosage: 5MG PO 2 WEEKS ON, 2 OFF
  9. AZITHROMYCIN [Concomitant]
     Active Substance: AZITHROMYCIN
     Dosage: 250MG
  10. LEVOFLOXACIN [Concomitant]
     Active Substance: LEVOFLOXACIN
     Dosage: 750MG
  11. MIDODRINE [Concomitant]
     Active Substance: MIDODRINE
     Dosage: 5MG

REACTIONS (1)
  - Sepsis [Fatal]

NARRATIVE: CASE EVENT DATE: 20220121
